FAERS Safety Report 9859719 (Version 10)
Quarter: 2015Q3

REPORT INFORMATION
  Report Type: Report from Study
  Country: US (occurrence: US)
  Receive Date: 20140131
  Receipt Date: 20150728
  Transmission Date: 20151125
  Serious: Yes (Hospitalization)
  Sender: FDA-Public Use
  Company Number: US-SA-2014SA009615

PATIENT
  Age: 31 Year
  Sex: Female

DRUGS (4)
  1. AUBAGIO [Suspect]
     Active Substance: TERIFLUNOMIDE
     Indication: MULTIPLE SCLEROSIS
     Route: 048
     Dates: start: 20140523
  2. LYRICA [Concomitant]
     Active Substance: PREGABALIN
  3. AUBAGIO [Suspect]
     Active Substance: TERIFLUNOMIDE
     Indication: MULTIPLE SCLEROSIS
     Route: 048
     Dates: start: 20140107, end: 20140412
  4. KLONOPIN [Concomitant]
     Active Substance: CLONAZEPAM

REACTIONS (9)
  - Amnesia [Recovering/Resolving]
  - Insomnia [Unknown]
  - Seizure [Recovered/Resolved]
  - Rhinorrhoea [Unknown]
  - Pain in extremity [Not Recovered/Not Resolved]
  - Contusion [Not Recovered/Not Resolved]
  - Seizure [Recovered/Resolved]
  - Peripheral swelling [Recovering/Resolving]
  - Tremor [Unknown]

NARRATIVE: CASE EVENT DATE: 2013
